FAERS Safety Report 9145848 (Version 1)
Quarter: 2013Q1

REPORT INFORMATION
  Report Type: Report from Study
  Country: FR (occurrence: FR)
  Receive Date: 20130307
  Receipt Date: 20130307
  Transmission Date: 20140127
  Serious: Yes (Other)
  Sender: FDA-Public Use
  Company Number: FR-GENZYME-CLOF-1002541

PATIENT
  Age: 25 Year
  Sex: Male

DRUGS (7)
  1. EVOLTRA [Suspect]
     Indication: ACUTE MYELOID LEUKAEMIA
     Dosage: 30 MG/M2, UNK
     Route: 065
     Dates: start: 20110630, end: 20110704
  2. EVOLTRA [Suspect]
     Indication: BONE MARROW CONDITIONING REGIMEN
  3. THYMOGLOBULINE [Suspect]
     Indication: BONE MARROW CONDITIONING REGIMEN
     Dosage: UNK
     Route: 065
     Dates: start: 2011
  4. ARACYTINE [Suspect]
     Indication: ACUTE MYELOID LEUKAEMIA
     Dosage: UNK
     Route: 065
     Dates: start: 2011
  5. ARACYTINE [Suspect]
     Indication: BONE MARROW CONDITIONING REGIMEN
  6. ENDOXAN [Suspect]
     Indication: BONE MARROW CONDITIONING REGIMEN
     Dosage: UNK
     Route: 065
     Dates: start: 2011
  7. BUSILVEX [Suspect]
     Indication: BONE MARROW CONDITIONING REGIMEN
     Dosage: UNK
     Route: 065
     Dates: start: 2011

REACTIONS (3)
  - Lung infection [Unknown]
  - Acute myeloid leukaemia recurrent [Unknown]
  - Diarrhoea [Recovered/Resolved]
